FAERS Safety Report 4369494-4 (Version None)
Quarter: 2004Q2

REPORT INFORMATION
  Report Type: 
  Country: None (occurrence: None)
  Receive Date: 20040527
  Receipt Date: 20040521
  Transmission Date: 20050107
  Serious: Yes (Other)
  Sender: FDA-Public Use
  Company Number: 200417692BWH

PATIENT
  Age: 39 Year
  Weight: 66.2252 kg

DRUGS (5)
  1. NIMOTOP [Suspect]
     Indication: SUBARACHNOID HAEMORRHAGE
     Dosage: 60 MG, Q4HR
     Dates: start: 20040415
  2. DEXAMETHASONE [Concomitant]
  3. ENALAPRILAT [Concomitant]
  4. CEFTRIAXONE [Concomitant]
  5. AMPICILLIN [Concomitant]

REACTIONS (3)
  - BLOOD POTASSIUM DECREASED [None]
  - PCO2 DECREASED [None]
  - VENTRICULAR EXTRASYSTOLES [None]
